FAERS Safety Report 6750208-5 (Version None)
Quarter: 2010Q2

REPORT INFORMATION
  Report Type: 
  Country: None (occurrence: None)
  Receive Date: 20100601
  Receipt Date: 20100521
  Transmission Date: 20101027
  Serious: Yes (Other)
  Sender: FDA-Public Use
  Company Number: JP-PFIZER INC-2010061877

PATIENT

DRUGS (3)
  1. VFEND [Suspect]
     Route: 042
  2. PRODIF [Suspect]
     Route: 042
  3. OXYCONTIN [Interacting]
     Dosage: UNK
     Route: 048

REACTIONS (2)
  - DRUG INTERACTION [None]
  - RESPIRATORY DEPRESSION [None]
